FAERS Safety Report 4546558-3 (Version None)
Quarter: 2005Q1

REPORT INFORMATION
  Report Type: 
  Country: None (occurrence: None)
  Receive Date: 20050103
  Receipt Date: 20041221
  Transmission Date: 20050727
  Serious: Yes (Other)
  Sender: FDA-Public Use
  Company Number: CIP04002743

PATIENT

DRUGS (2)
  1. RISEDRONATE (RISEDRONATE SODIUM) TABLET [Suspect]
     Indication: OSTEOPOROSIS
     Dosage: ORAL
     Route: 048
  2. DRUG NOS. [Suspect]

REACTIONS (27)
  - BLEPHARITIS [None]
  - BLINDNESS [None]
  - BLINDNESS TRANSIENT [None]
  - CATARACT [None]
  - CONDITION AGGRAVATED [None]
  - CONJUNCTIVITIS [None]
  - CORNEAL DEPOSITS [None]
  - CORNEAL ULCER [None]
  - DIPLOPIA [None]
  - EYE DISORDER [None]
  - EYE INFLAMMATION [None]
  - EYE PAIN [None]
  - GLAUCOMA [None]
  - IRIDOCYCLITIS [None]
  - IRITIS [None]
  - KERATITIS [None]
  - LACRIMAL DISORDER [None]
  - MACULAR DEGENERATION [None]
  - MYOPIA [None]
  - PAPILLOEDEMA [None]
  - PHOTOPSIA [None]
  - RETINAL DETACHMENT [None]
  - RETINAL DISORDER [None]
  - SCLERITIS [None]
  - UVEITIS [None]
  - VISUAL DISTURBANCE [None]
  - VITREOUS FLOATERS [None]
